FAERS Safety Report 5225823-0 (Version None)
Quarter: 2007Q1

REPORT INFORMATION
  Report Type: 
  Country: None (occurrence: None)
  Receive Date: 20070201
  Receipt Date: 20070122
  Transmission Date: 20070707
  Serious: Yes (Hospitalization)
  Sender: FDA-Public Use
  Company Number: PHBS2006DK17982

PATIENT
  Age: 75 Year
  Sex: Female

DRUGS (12)
  1. LAMISIL [Suspect]
     Indication: NAIL TINEA
     Dosage: 250 MG/D
     Route: 048
     Dates: start: 20030909, end: 20030926
  2. FURIX [Concomitant]
     Dosage: 40 MG, BID
     Route: 048
  3. POTASSIUM CHLORIDE [Concomitant]
     Dosage: 750 MG, BID
     Route: 048
  4. ZOCOR [Concomitant]
     Dosage: 40 MG, QD
     Route: 048
  5. HJERTEMAGNYL ^DAK^ [Concomitant]
     Dosage: 150 MG, QD
     Route: 065
  6. BRICANYL [Concomitant]
     Dosage: 7.5 MG, BID
     Route: 048
  7. SELO-ZOK [Concomitant]
     Dosage: 100 MG, QD
     Route: 048
  8. SERETIDE [Concomitant]
  9. NITROGLYCERIN [Concomitant]
     Dosage: 0.5 UG, PRN
     Route: 060
  10. LAXOBERAL [Concomitant]
     Dosage: UNK, PRN
  11. KODEIN-MAGNYL [Concomitant]
     Dosage: UNK, PRN
     Route: 048
  12. PAMOL [Concomitant]
     Dosage: UNK, PRN
     Route: 048

REACTIONS (11)
  - CARDIAC DISORDER [None]
  - DERMATITIS EXFOLIATIVE [None]
  - DRUG ERUPTION [None]
  - FACE OEDEMA [None]
  - FLUSHING [None]
  - LIP EXFOLIATION [None]
  - MOUTH ULCERATION [None]
  - PNEUMONIA [None]
  - PSORIASIS [None]
  - RASH ERYTHEMATOUS [None]
  - SKIN OEDEMA [None]
